FAERS Safety Report 24970409 (Version 1)
Quarter: 2025Q1

REPORT INFORMATION
  Report Type: Spontaneous
  Country: US (occurrence: US)
  Receive Date: 20250214
  Receipt Date: 20250214
  Transmission Date: 20250409
  Serious: Yes (Other)
  Sender: PURACAP PHARMACEUTICAL LLC
  Company Number: US-PURACAP-US-2025EPCSPO00160

PATIENT
  Age: 65 Year
  Sex: Female

DRUGS (1)
  1. DOCUSATE SODIUM [Suspect]
     Active Substance: DOCUSATE SODIUM
     Indication: Constipation
     Route: 048
     Dates: start: 202412, end: 202412

REACTIONS (3)
  - Haematochezia [Recovered/Resolved]
  - Dyspepsia [Recovered/Resolved]
  - Abdominal pain upper [Recovered/Resolved]

NARRATIVE: CASE EVENT DATE: 20241201
